FAERS Safety Report 24361952 (Version 1)
Quarter: 2024Q3

REPORT INFORMATION
  Report Type: Spontaneous
  Country: IT (occurrence: IT)
  Receive Date: 20240925
  Receipt Date: 20240925
  Transmission Date: 20241017
  Serious: Yes (Other)
  Sender: RANBAXY
  Company Number: IT-SUN PHARMACEUTICAL INDUSTRIES LTD-2024R1-469448

PATIENT
  Age: 82 Year
  Sex: Female

DRUGS (20)
  1. METHOTREXATE [Suspect]
     Active Substance: METHOTREXATE
     Indication: Blepharitis
     Dosage: UNK
     Route: 065
  2. METHOTREXATE [Suspect]
     Active Substance: METHOTREXATE
     Indication: Cataract
  3. METHOTREXATE [Suspect]
     Active Substance: METHOTREXATE
     Indication: Glaucoma
  4. METHOTREXATE [Suspect]
     Active Substance: METHOTREXATE
     Indication: Keratopathy
  5. METHOTREXATE [Suspect]
     Active Substance: METHOTREXATE
     Indication: Corneal disorder
  6. ACETAMINOPHEN [Suspect]
     Active Substance: ACETAMINOPHEN
     Indication: Blepharitis
     Dosage: UNK
     Route: 065
  7. ACETAMINOPHEN [Suspect]
     Active Substance: ACETAMINOPHEN
     Indication: Cataract
  8. ACETAMINOPHEN [Suspect]
     Active Substance: ACETAMINOPHEN
     Indication: Glaucoma
  9. ACETAMINOPHEN [Suspect]
     Active Substance: ACETAMINOPHEN
     Indication: Keratopathy
  10. ACETAMINOPHEN [Suspect]
     Active Substance: ACETAMINOPHEN
     Indication: Corneal disorder
  11. CYCLOPHOSPHAMIDE [Suspect]
     Active Substance: CYCLOPHOSPHAMIDE
     Indication: Blepharitis
     Dosage: UNK
     Route: 065
  12. CYCLOPHOSPHAMIDE [Suspect]
     Active Substance: CYCLOPHOSPHAMIDE
     Indication: Cataract
  13. CYCLOPHOSPHAMIDE [Suspect]
     Active Substance: CYCLOPHOSPHAMIDE
     Indication: Glaucoma
  14. CYCLOPHOSPHAMIDE [Suspect]
     Active Substance: CYCLOPHOSPHAMIDE
     Indication: Keratopathy
  15. CYCLOPHOSPHAMIDE [Suspect]
     Active Substance: CYCLOPHOSPHAMIDE
     Indication: Corneal disorder
  16. TAPENTADOL [Suspect]
     Active Substance: TAPENTADOL
     Indication: Blepharitis
     Dosage: UNK
     Route: 065
  17. TAPENTADOL [Suspect]
     Active Substance: TAPENTADOL
     Indication: Cataract
  18. TAPENTADOL [Suspect]
     Active Substance: TAPENTADOL
     Indication: Glaucoma
  19. TAPENTADOL [Suspect]
     Active Substance: TAPENTADOL
     Indication: Keratopathy
  20. TAPENTADOL [Suspect]
     Active Substance: TAPENTADOL
     Indication: Corneal disorder

REACTIONS (1)
  - Drug resistance [Unknown]
